FAERS Safety Report 5844232-4 (Version None)
Quarter: 2008Q3

REPORT INFORMATION
  Report Type: 
  Country: None (occurrence: None)
  Receive Date: 20080813
  Receipt Date: 20080801
  Transmission Date: 20090109
  Serious: Yes (Other)
  Sender: FDA-Public Use
  Company Number: US-PFIZER INC-2008065347

PATIENT
  Sex: Female
  Weight: 63.5 kg

DRUGS (1)
  1. ZITHROMAX [Suspect]
     Indication: STREPTOCOCCAL INFECTION

REACTIONS (3)
  - ARRHYTHMIA [None]
  - BLOOD POTASSIUM DECREASED [None]
  - STREPTOCOCCAL INFECTION [None]
